FAERS Safety Report 7140820 (Version 5)
Quarter: 2013Q1

REPORT INFORMATION
  Report Type: Spontaneous
  Country: US (occurrence: US)
  Receive Date: 20091006
  Receipt Date: 20130206
  Transmission Date: 20140127
  Serious: Yes (Death, Life-Threatening, Hospitalization, Other)
  Sender: FDA-Public Use
  Company Number: US-JNJFOC-20090907908

PATIENT
  Sex: Male

DRUGS (2)
  1. REMICADE [Suspect]
     Indication: COLITIS ULCERATIVE
     Route: 042
     Dates: start: 2006
  2. IMURAN [Suspect]
     Indication: COLITIS ULCERATIVE

REACTIONS (3)
  - Hepatosplenic T-cell lymphoma [Fatal]
  - Renal disorder [Unknown]
  - Hepatic haemorrhage [Unknown]
